FAERS Safety Report 10687168 (Version 1)
Quarter: 2014Q4

REPORT INFORMATION
  Report Type: Spontaneous
  Country: US (occurrence: None)
  Receive Date: 20141230
  Receipt Date: 20141230
  Transmission Date: 20150529
  Serious: Yes (Hospitalization)
  Sender: FDA-Public Use
  Company Number: None

PATIENT
  Age: 62 Year
  Sex: Male
  Weight: 70.6 kg

DRUGS (2)
  1. ASPIRIN. [Suspect]
     Active Substance: ASPIRIN
     Indication: ATRIAL FIBRILLATION
     Dosage: 81 MG, EVERY DAY, PO
     Route: 048
     Dates: start: 20130309, end: 20141111
  2. ASPIRIN. [Suspect]
     Active Substance: ASPIRIN
     Indication: CARDIAC FAILURE CONGESTIVE
     Dosage: 81 MG, EVERY DAY, PO
     Route: 048
     Dates: start: 20130309, end: 20141111

REACTIONS (5)
  - Mallory-Weiss syndrome [None]
  - Helicobacter infection [None]
  - Peptic ulcer [None]
  - Retching [None]
  - Gastric haemorrhage [None]

NARRATIVE: CASE EVENT DATE: 20141111
